FAERS Safety Report 6837864-8 (Version None)
Quarter: 2010Q3

REPORT INFORMATION
  Report Type: 
  Country: None (occurrence: None)
  Receive Date: 20100713
  Receipt Date: 20070522
  Transmission Date: 20110219
  Serious: No
  Sender: FDA-Public Use
  Company Number: US-PFIZER INC-2007042647

PATIENT
  Sex: Female
  Weight: 54.4 kg

DRUGS (5)
  1. CHANTIX [Suspect]
     Indication: SMOKING CESSATION THERAPY
     Dates: start: 20070512
  2. MOBIC [Concomitant]
  3. ULTRACET [Concomitant]
  4. EVISTA [Concomitant]
  5. TRANXENE [Concomitant]

REACTIONS (1)
  - GASTROINTESTINAL PAIN [None]
